FAERS Safety Report 14517728 (Version 1)
Quarter: 2018Q1

REPORT INFORMATION
  Report Type: Spontaneous
  Country: US (occurrence: US)
  Receive Date: 20180212
  Receipt Date: 20180212
  Transmission Date: 20180509
  Serious: No
  Sender: FDA-Public Use
  Company Number: US-BAYER-2018-026713

PATIENT
  Age: 43 Year
  Sex: Female

DRUGS (1)
  1. CLIMARA PRO [Suspect]
     Active Substance: ESTRADIOL\LEVONORGESTREL
     Route: 062

REACTIONS (3)
  - Product physical issue [Not Recovered/Not Resolved]
  - Application site rash [Not Recovered/Not Resolved]
  - Product physical issue [None]

NARRATIVE: CASE EVENT DATE: 201801
